FAERS Safety Report 10147156 (Version 1)
Quarter: 2014Q2

REPORT INFORMATION
  Report Type: Spontaneous
  Country: BR (occurrence: BR)
  Receive Date: 20140501
  Receipt Date: 20140501
  Transmission Date: 20141212
  Serious: Yes (Other)
  Sender: FDA-Public Use
  Company Number: BR-BAXTER-2014BAX020623

PATIENT
  Age: 21 Year
  Sex: Female

DRUGS (5)
  1. ENDOBULIN KIOVIG [Suspect]
     Indication: HAEMOLYTIC ANAEMIA
     Route: 042
  2. GENUXAL [Suspect]
     Indication: HAEMOLYTIC ANAEMIA
     Dosage: 2 G/M2
     Route: 042
  3. GENUXAL [Suspect]
     Route: 042
  4. RITUXIMAB [Suspect]
     Indication: HAEMOLYTIC ANAEMIA
     Route: 065
  5. MYCOPHENOLATE MOFETIL [Suspect]
     Indication: HAEMOLYTIC ANAEMIA
     Route: 065

REACTIONS (1)
  - Treatment failure [Not Recovered/Not Resolved]
